FAERS Safety Report 8997192 (Version 6)
Quarter: 2013Q4

REPORT INFORMATION
  Report Type: Report from Study
  Country: HU (occurrence: HU)
  Receive Date: 20130104
  Receipt Date: 20131004
  Transmission Date: 20140711
  Serious: Yes (Hospitalization)
  Sender: FDA-Public Use
  Company Number: HU-PFIZER INC-2012325454

PATIENT
  Age: 56 Year
  Sex: Female
  Weight: 68 kg

DRUGS (4)
  1. AXITINIB [Suspect]
     Indication: HEPATIC CANCER METASTATIC
     Dosage: 3 MG, 2X/DAY
     Route: 048
     Dates: start: 20120314
  2. COVEREX [Concomitant]
     Indication: HYPERTENSION
     Dosage: 8 MG, 1X/DAY
     Route: 048
     Dates: start: 20120320
  3. TALLITON [Concomitant]
     Indication: HYPERTENSION
     Dosage: 50 MG, 1X/DAY
     Route: 048
     Dates: start: 20120411
  4. COVEREX-AS KOMB FORTE [Concomitant]
     Indication: HYPERTENSION
     Dosage: 2.5 MG/10 MG
     Route: 048
     Dates: start: 20120411

REACTIONS (2)
  - Cataract [Recovered/Resolved]
  - Cataract [Recovered/Resolved]
